FAERS Safety Report 16117246 (Version 1)
Quarter: 2019Q1

REPORT INFORMATION
  Report Type: Spontaneous
  Country: GB (occurrence: GB)
  Receive Date: 20190326
  Receipt Date: 20190326
  Transmission Date: 20190418
  Serious: Yes (Hospitalization)
  Sender: FDA-Public Use
  Company Number: GB-ACCORD-114346

PATIENT
  Age: 77 Year
  Sex: Female
  Weight: 82.34 kg

DRUGS (11)
  1. FELODIPINE. [Concomitant]
     Active Substance: FELODIPINE
  2. ATORVASTATIN [Concomitant]
     Active Substance: ATORVASTATIN
  3. BUMETANIDE. [Concomitant]
     Active Substance: BUMETANIDE
  4. WARFARIN [Concomitant]
     Active Substance: WARFARIN
  5. SALBUTAMOL [Concomitant]
     Active Substance: ALBUTEROL
  6. NEBIVOLOL. [Concomitant]
     Active Substance: NEBIVOLOL
  7. FOSTAIR [Concomitant]
     Active Substance: BECLOMETHASONE\FORMOTEROL
  8. ISOSORBIDE. [Suspect]
     Active Substance: ISOSORBIDE
     Indication: ANGINA PECTORIS
     Route: 048
     Dates: start: 20180711, end: 20180725
  9. CLOTRIMAZOLE. [Concomitant]
     Active Substance: CLOTRIMAZOLE
  10. LEVOTHYROXINE. [Concomitant]
     Active Substance: LEVOTHYROXINE
  11. PARACETAMOL [Concomitant]
     Active Substance: ACETAMINOPHEN

REACTIONS (1)
  - Urinary retention [Recovered/Resolved]

NARRATIVE: CASE EVENT DATE: 20180713
